FAERS Safety Report 16450734 (Version 1)
Quarter: 2019Q2

REPORT INFORMATION
  Report Type: Spontaneous
  Country: US (occurrence: US)
  Receive Date: 20190619
  Receipt Date: 20190619
  Transmission Date: 20190711
  Serious: Yes (Other)
  Sender: FDA-Public Use
  Company Number: PHEH2019US025077

PATIENT
  Sex: Female

DRUGS (1)
  1. COSENTYX [Suspect]
     Active Substance: SECUKINUMAB
     Indication: PRODUCT USED FOR UNKNOWN INDICATION
     Dosage: 150 MG, UNK (ONCE)
     Route: 065
     Dates: end: 201902

REACTIONS (4)
  - Haematochezia [Unknown]
  - Nervousness [Unknown]
  - Hypertension [Unknown]
  - Haemoptysis [Unknown]
